FAERS Safety Report 4609543-9 (Version None)
Quarter: 2005Q1

REPORT INFORMATION
  Report Type: 
  Country: None (occurrence: None)
  Receive Date: 20050314
  Receipt Date: 20050314
  Transmission Date: 20050727
  Serious: No
  Sender: FDA-Public Use
  Company Number: None

PATIENT
  Sex: Female
  Weight: 59 kg

DRUGS (4)
  1. VANCOMYCIN [Suspect]
     Indication: CELLULITIS
     Dosage: 1.5GM  EVERY 12 HOURS   INTRAVENOU
     Route: 042
     Dates: start: 20050224, end: 20050304
  2. CIPROFLOXACIN HCL [Concomitant]
  3. SYNTHROID [Concomitant]
  4. VICODIN [Concomitant]

REACTIONS (1)
  - RASH GENERALISED [None]
